FAERS Safety Report 8880841 (Version 1)
Quarter: 2012Q4

REPORT INFORMATION
  Report Type: 
  Country: US (occurrence: US)
  Receive Date: 20121101
  Receipt Date: 20121101
  Transmission Date: 20130627
  Serious: Yes (Other)
  Sender: FDA-Public Use
  Company Number: US-PFIZER INC-2012266993

PATIENT
  Age: 24 Year
  Sex: Male

DRUGS (4)
  1. SULFASALAZINE [Suspect]
     Indication: PANCOLITIS
     Dosage: UNK
  2. CIPROFLOXACIN [Suspect]
     Indication: PANCOLITIS
     Dosage: UNK
  3. METRONIDAZOLE [Suspect]
     Indication: PANCOLITIS
     Dosage: UNK
  4. SOLU-MEDROL [Suspect]
     Indication: PANCOLITIS
     Dosage: UNK

REACTIONS (4)
  - Toxicity to various agents [Recovering/Resolving]
  - Haematuria [Recovering/Resolving]
  - Hypotension [Recovering/Resolving]
  - Disseminated intravascular coagulation [Recovering/Resolving]
